FAERS Safety Report 15329283 (Version 1)
Quarter: 2018Q3

REPORT INFORMATION
  Report Type: Spontaneous
  Country: US (occurrence: US)
  Receive Date: 20180823
  Receipt Date: 20180823
  Transmission Date: 20181010
  Serious: No
  Sender: FDA-Public Use
  Company Number: None

PATIENT
  Age: 51 Year
  Sex: Male
  Weight: 100.24 kg

DRUGS (1)
  1. TALTZ [Suspect]
     Active Substance: IXEKIZUMAB
     Indication: PSORIASIS
     Dosage: INJECT 890MG (1PEN) SUBCUTANEOUSLY EVERY  4 WEEKS AS DIREDCED?
     Route: 058
     Dates: start: 201806

REACTIONS (1)
  - Wrist fracture [None]
